FAERS Safety Report 14816632 (Version 1)
Quarter: 2018Q2

REPORT INFORMATION
  Report Type: Spontaneous
  Country: FR (occurrence: FR)
  Receive Date: 20180426
  Receipt Date: 20180426
  Transmission Date: 20180711
  Serious: Yes (Death, Hospitalization, Other)
  Sender: FDA-Public Use
  Company Number: FR-PURDUE-GBR-2009-0005673

PATIENT
  Age: 59 Year
  Sex: Female

DRUGS (2)
  1. MIDAZOLAM [Suspect]
     Active Substance: MIDAZOLAM HYDROCHLORIDE
     Indication: CANCER PAIN
     Dosage: 10 MG, SINGLE
     Route: 042
     Dates: start: 20090827, end: 20090827
  2. OXYNORM [Suspect]
     Active Substance: OXYCODONE HYDROCHLORIDE
     Indication: CANCER PAIN
     Dosage: 20 MG, SINGLE
     Route: 042
     Dates: start: 20090827, end: 20090827

REACTIONS (3)
  - Incorrect drug dosage form administered [Unknown]
  - Respiratory distress [Recovered/Resolved]
  - Disease progression [Fatal]

NARRATIVE: CASE EVENT DATE: 20090827
